FAERS Safety Report 9652891 (Version 2)
Quarter: 2013Q4

REPORT INFORMATION
  Report Type: Spontaneous
  Country: IN (occurrence: IN)
  Receive Date: 20131029
  Receipt Date: 20131029
  Transmission Date: 20140711
  Serious: Yes (Hospitalization)
  Sender: FDA-Public Use
  Company Number: IN-SA-THYM-1003976

PATIENT
  Age: 31 Year
  Sex: Male
  Weight: 65 kg

DRUGS (5)
  1. THYMOGLOBULINE [Suspect]
     Indication: BONE MARROW CONDITIONING REGIMEN
     Dosage: 1-1.5 MG/KG, UNK FOR THREE DAYS
     Route: 065
     Dates: start: 20130418, end: 20130418
  2. THYMOGLOBULINE [Suspect]
     Indication: BONE MARROW CONDITIONING REGIMEN
     Dosage: 1-1.5 MG/KG, UNK FOR THREE DAYS
     Route: 065
     Dates: start: 20130420, end: 20130420
  3. THYMOGLOBULINE [Suspect]
     Indication: BONE MARROW CONDITIONING REGIMEN
     Dosage: 1-1.5 MG/KG, UNK FOR THREE DAYS
     Route: 065
     Dates: start: 20130422, end: 20130422
  4. TACROLIMUS [Concomitant]
     Route: 065
     Dates: start: 20130416
  5. MYCOPHENOLATE MOFETIL [Concomitant]
     Route: 065
     Dates: start: 20130416

REACTIONS (1)
  - Transplant rejection [Recovered/Resolved with Sequelae]
